FAERS Safety Report 7537926-6 (Version None)
Quarter: 2011Q2

REPORT INFORMATION
  Report Type: 
  Country: None (occurrence: None)
  Receive Date: 20110609
  Receipt Date: 20110608
  Transmission Date: 20111010
  Serious: Yes (Other)
  Sender: FDA-Public Use
  Company Number: US-UCBSA-034773

PATIENT
  Sex: Male
  Weight: 121.8 kg

DRUGS (11)
  1. GLIMEPIRIDE [Concomitant]
     Indication: DIABETES MELLITUS
     Dates: start: 20090101
  2. TRAZODONE HCL [Concomitant]
     Indication: INSOMNIA
     Dosage: AT BEDTIME
     Route: 048
  3. TRICHOL [Concomitant]
     Indication: BLOOD CHOLESTEROL INCREASED
     Dosage: AT BEDTIME
     Dates: start: 20060101
  4. CYMBALTA [Concomitant]
     Indication: DEPRESSION
     Dosage: AT BEDTIME
     Dates: start: 20060101
  5. KEPPRA [Suspect]
     Indication: CONVULSION
     Route: 048
  6. METOPROLOL TARTRATE [Concomitant]
     Indication: DIABETES MELLITUS
     Dosage: IN THE MORNING
     Dates: start: 20090101
  7. MORPHINE [Concomitant]
     Indication: ARTHRALGIA
     Route: 048
  8. CRESTOR [Concomitant]
     Indication: BLOOD CHOLESTEROL INCREASED
     Dates: start: 20060101
  9. DEPAKOTE [Concomitant]
     Indication: CONVULSION
     Route: 048
  10. LISINOPRIL AND HYDROCHLOROTHIAZIDE [Concomitant]
     Indication: HYPERTENSION
     Dosage: 20/25 MG DAILY
     Dates: start: 20060101
  11. ZOCOR [Concomitant]
     Indication: BLOOD CHOLESTEROL INCREASED
     Dosage: AT BEDTIME
     Dates: start: 20060101

REACTIONS (9)
  - MEDICATION RESIDUE [None]
  - CONVULSION [None]
  - BLOOD CHOLESTEROL INCREASED [None]
  - AGGRESSION [None]
  - AMNESIA [None]
  - DIABETES MELLITUS [None]
  - DEPRESSION [None]
  - HYPERTENSION [None]
  - CONSTIPATION [None]
